FAERS Safety Report 22399781 (Version 1)
Quarter: 2023Q2

REPORT INFORMATION
  Report Type: Spontaneous
  Country: CA (occurrence: CA)
  Receive Date: 20230602
  Receipt Date: 20230602
  Transmission Date: 20230722
  Serious: Yes (Other)
  Sender: FDA-Public Use
  Company Number: CA-PFIZER INC-202300205737

PATIENT
  Age: 72 Year
  Sex: Male

DRUGS (4)
  1. METHOTREXATE SODIUM [Suspect]
     Active Substance: METHOTREXATE SODIUM
     Dosage: UP TO 25 MG
     Route: 065
     Dates: start: 20120321
  2. SULFASALAZINE [Suspect]
     Active Substance: SULFASALAZINE
     Dosage: 2 DF (2 TABLETS), 3X/DAY
     Route: 048
     Dates: start: 20160808
  3. PLAQUENIL [Concomitant]
     Active Substance: HYDROXYCHLOROQUINE SULFATE
     Dosage: ^2CO TID^
     Dates: start: 20160608
  4. PREDNISONE [Concomitant]
     Active Substance: PREDNISONE
     Dosage: AS NEEDED ACCORDING TO CRISIS

REACTIONS (2)
  - Rheumatoid arthritis [Not Recovered/Not Resolved]
  - Drug ineffective [Not Recovered/Not Resolved]
